FAERS Safety Report 9631472 (Version 1)
Quarter: 2013Q4

REPORT INFORMATION
  Report Type: Report from Study
  Country: AR (occurrence: AR)
  Receive Date: 20131018
  Receipt Date: 20131018
  Transmission Date: 20140711
  Serious: Yes (Hospitalization, Other)
  Sender: FDA-Public Use
  Company Number: PHHY2013AR117493

PATIENT
  Sex: Male

DRUGS (2)
  1. DIOVAN [Suspect]
     Indication: HYPERTENSION
     Dosage: 0.5 TABLET (160 MG) IN THE MORNING AND 0.5 TABLET (160 MG) IN THE AFTERNOON
     Route: 048
     Dates: end: 20130523
  2. DIOVAN [Suspect]
     Dosage: 0.5 TABLET (80 MG) IN THE MORNING AND 0.5 TABLET (80 MG) IN THE AFTERNOON
     Route: 048
     Dates: start: 20130524

REACTIONS (5)
  - Pneumonia [Recovered/Resolved]
  - Blood pressure diastolic increased [Recovered/Resolved]
  - Pain in extremity [Recovered/Resolved]
  - Angiopathy [Recovered/Resolved]
  - Wrong technique in drug usage process [Unknown]
